FAERS Safety Report 13362653 (Version 3)
Quarter: 2017Q4

REPORT INFORMATION
  Report Type: Spontaneous
  Country: US (occurrence: US)
  Receive Date: 20170323
  Receipt Date: 20171109
  Transmission Date: 20180320
  Serious: Yes (Hospitalization, Other)
  Sender: FDA-Public Use
  Company Number: US-PFIZER INC-2017126123

PATIENT
  Age: 68 Year
  Sex: Female

DRUGS (1)
  1. XELJANZ XR [Suspect]
     Active Substance: TOFACITINIB CITRATE
     Indication: RHEUMATOID ARTHRITIS
     Dosage: 11 MG, 1X/DAY
     Route: 048
     Dates: start: 20170309, end: 20170518

REACTIONS (5)
  - Condition aggravated [Unknown]
  - Headache [Unknown]
  - Arthralgia [Unknown]
  - Post procedural complication [Unknown]
  - Nasal congestion [Unknown]

NARRATIVE: CASE EVENT DATE: 201703
